FAERS Safety Report 23403638 (Version 1)
Quarter: 2024Q1

REPORT INFORMATION
  Report Type: Spontaneous
  Country: FR (occurrence: FR)
  Receive Date: 20240116
  Receipt Date: 20240116
  Transmission Date: 20240409
  Serious: Yes (Other)
  Sender: FDA-Public Use
  Company Number: None

PATIENT
  Age: 43 Year
  Sex: Female

DRUGS (1)
  1. ACETAMINOPHEN [Suspect]
     Active Substance: ACETAMINOPHEN
     Indication: Pain
     Dosage: SUR 7 HEURES
     Route: 048
     Dates: start: 20230831

REACTIONS (2)
  - Hepatic cytolysis [Recovered/Resolved]
  - Prothrombin time shortened [Recovered/Resolved]

NARRATIVE: CASE EVENT DATE: 20230901
